FAERS Safety Report 5844592-4 (Version None)
Quarter: 2008Q3

REPORT INFORMATION
  Report Type: 
  Country: None (occurrence: None)
  Receive Date: 20080812
  Receipt Date: 20080804
  Transmission Date: 20090109
  Serious: Yes (Other)
  Sender: FDA-Public Use
  Company Number: CHNY2008JP02675

PATIENT
  Age: 60 Year
  Sex: Male

DRUGS (5)
  1. NICOTINE [Suspect]
     Indication: SMOKING CESSATION THERAPY
     Dosage: 14 MG, QD, TRANSDERMAL
     Route: 062
     Dates: start: 20080601, end: 20080703
  2. DEPAS (ETIZOLAM) [Concomitant]
  3. PRAMIEL (METOCLOPRAMIDE) [Concomitant]
  4. MOHRUS (KETOPROFEN) [Concomitant]
  5. MILTAX (KETOPROFEN) [Concomitant]

REACTIONS (14)
  - APPLICATION SITE DERMATITIS [None]
  - APPLICATION SITE DISCOLOURATION [None]
  - APPLICATION SITE DRYNESS [None]
  - APPLICATION SITE EROSION [None]
  - APPLICATION SITE ERYTHEMA [None]
  - APPLICATION SITE SWELLING [None]
  - BLISTER [None]
  - BURNING SENSATION [None]
  - DRUG HYPERSENSITIVITY [None]
  - ERYTHEMA [None]
  - PAIN [None]
  - PRURITUS [None]
  - RASH [None]
  - SKIN DISCOLOURATION [None]
